FAERS Safety Report 5002659-7 (Version None)
Quarter: 2006Q2

REPORT INFORMATION
  Report Type: 
  Country: None (occurrence: None)
  Receive Date: 20060510
  Receipt Date: 20060424
  Transmission Date: 20061013
  Serious: Yes (Other)
  Sender: FDA-Public Use
  Company Number: 2006000880

PATIENT
  Age: 60 Year
  Sex: Female

DRUGS (1)
  1. TARCEVA [Suspect]
     Indication: LUNG ADENOCARCINOMA METASTATIC
     Dosage: SEE IMAGE
     Route: 048

REACTIONS (3)
  - DIPLOPIA [None]
  - FATIGUE [None]
  - VISUAL ACUITY REDUCED [None]
